FAERS Safety Report 6746555-3 (Version None)
Quarter: 2010Q2

REPORT INFORMATION
  Report Type: 
  Country: None (occurrence: None)
  Receive Date: 20100526
  Receipt Date: 20100512
  Transmission Date: 20101027
  Serious: Yes (Hospitalization)
  Sender: FDA-Public Use
  Company Number: 593025

PATIENT
  Age: 68 Year
  Sex: Female

DRUGS (5)
  1. FENTANYL CITRATE [Suspect]
     Indication: INDUCTION OF ANAESTHESIA
     Dosage: 50 UG MICROGRAM(S)
  2. PROPOFOL [Suspect]
     Indication: INDUCTION OF ANAESTHESIA
     Dosage: 140 MG MILLIGRAM(S)
  3. VECURONIUM BROMIDE [Concomitant]
  4. (NORMAL SALINE) [Concomitant]
  5. (HYDROCHLOROTHIAZIDE W/LOSARTAN) [Concomitant]

REACTIONS (7)
  - ANAESTHETIC COMPLICATION VASCULAR [None]
  - ANXIETY [None]
  - ARTERIOSCLEROSIS CORONARY ARTERY [None]
  - ARTERIOSPASM CORONARY [None]
  - DRUG HYPERSENSITIVITY [None]
  - HYPOTENSION [None]
  - PRINZMETAL ANGINA [None]
